FAERS Safety Report 9859019 (Version 2)
Quarter: 2014Q1

REPORT INFORMATION
  Report Type: Spontaneous
  Country: DE (occurrence: GB)
  Receive Date: 20140131
  Receipt Date: 20140131
  Transmission Date: 20141002
  Serious: Yes (Other)
  Sender: FDA-Public Use
  Company Number: GB-PFIZER INC-2014024180

PATIENT
  Age: 23 Year
  Sex: Female

DRUGS (3)
  1. SULFASALAZINE [Suspect]
     Indication: COLITIS ULCERATIVE
     Dosage: UNK
  2. CODEINE PHOSPHATE [Concomitant]
     Indication: COLITIS ULCERATIVE
     Dosage: UNK
  3. FERROUS SULFATE [Concomitant]
     Indication: COLITIS ULCERATIVE
     Dosage: UNK

REACTIONS (2)
  - Lung disorder [Recovered/Resolved]
  - Eosinophilic pneumonia [Recovered/Resolved]
